FAERS Safety Report 5530678-0 (Version None)
Quarter: 2007Q4

REPORT INFORMATION
  Report Type: 
  Country: None (occurrence: None)
  Receive Date: 20071130
  Receipt Date: 20071126
  Transmission Date: 20080405
  Serious: Yes (Hospitalization)
  Sender: FDA-Public Use
  Company Number: FR-ASTRAZENECA-2007CG01677

PATIENT
  Age: 69 Year
  Sex: Male

DRUGS (5)
  1. MOPRAL [Suspect]
     Indication: DYSPEPSIA
     Route: 048
     Dates: start: 20071021, end: 20071025
  2. SOLU-MEDROL [Concomitant]
  3. SOLUPRED [Concomitant]
     Route: 048
  4. LEXOMIL [Concomitant]
  5. GAVISCON [Concomitant]

REACTIONS (1)
  - HAEMOLYTIC ANAEMIA [None]
